FAERS Safety Report 5799165-9 (Version None)
Quarter: 2008Q3

REPORT INFORMATION
  Report Type: 
  Country: None (occurrence: None)
  Receive Date: 20080701
  Receipt Date: 20080624
  Transmission Date: 20090109
  Serious: Yes (Hospitalization)
  Sender: FDA-Public Use
  Company Number: APP200800561

PATIENT
  Age: 66 Year
  Sex: Female
  Weight: 58.9676 kg

DRUGS (14)
  1. DEXAMETHASONE SODIUM PHOSPHATE [Suspect]
     Indication: DRUG USE FOR UNKNOWN INDICATION
     Dosage: INTRAVENOUS
     Route: 042
     Dates: start: 20080313, end: 20080327
  2. TAXOL [Suspect]
     Indication: BREAST CANCER
     Dosage: 144 MG, 1 IN 1 WK, INTRAVENOUS
     Route: 042
     Dates: start: 20080313, end: 20080327
  3. BEVACIZUMAB (BEVACIZUMAB) [Suspect]
     Indication: BREAST CANCER
     Dosage: 608 MG, 1 IN 2 WK, INTRAVENOUS
     Route: 042
     Dates: start: 20080313, end: 20080327
  4. PRILOSEC [Concomitant]
  5. LOVASTATIN [Concomitant]
  6. LISINOPRIL [Concomitant]
  7. ACETAMINOPHEN [Concomitant]
  8. TUMS (CALCIUM CARBONATE) [Concomitant]
  9. ZOMETA [Concomitant]
  10. PERCOCET [Concomitant]
  11. MECLIZINE [Concomitant]
  12. RANITIDINE [Concomitant]
  13. BENADRYL [Concomitant]
  14. GRANISETRON  HCL [Concomitant]

REACTIONS (5)
  - CATHETER RELATED INFECTION [None]
  - CONFUSIONAL STATE [None]
  - FLUID RETENTION [None]
  - HYPONATRAEMIA [None]
  - LEUKOENCEPHALOPATHY [None]
